FAERS Safety Report 15731461 (Version 1)
Quarter: 2018Q4

REPORT INFORMATION
  Report Type: Spontaneous
  Country: US (occurrence: US)
  Receive Date: 20181217
  Receipt Date: 20181217
  Transmission Date: 20190205
  Serious: Yes (Hospitalization, Other)
  Sender: FDA-Public Use
  Company Number: US-SUNOVION-2018SUN004880

PATIENT
  Sex: Male

DRUGS (1)
  1. LATUDA [Suspect]
     Active Substance: LURASIDONE HYDROCHLORIDE
     Indication: DEPRESSION
     Dosage: 20 MG
     Route: 048

REACTIONS (5)
  - Suicidal ideation [Unknown]
  - Bipolar disorder [Recovered/Resolved]
  - Tardive dyskinesia [Recovered/Resolved]
  - Tourette^s disorder [Recovered/Resolved]
  - Off label use [Unknown]
